FAERS Safety Report 9612360 (Version 2)
Quarter: 2013Q4

REPORT INFORMATION
  Report Type: Spontaneous
  Country: JP (occurrence: JP)
  Receive Date: 20131010
  Receipt Date: 20131010
  Transmission Date: 20140711
  Serious: Yes (Hospitalization)
  Sender: FDA-Public Use
  Company Number: JP-MERCK-1309JPN010097

PATIENT
  Age: 61 Year
  Sex: Female

DRUGS (9)
  1. GLACTIV [Suspect]
     Indication: TYPE 2 DIABETES MELLITUS
     Dosage: 25MG,50MG,100MG
     Route: 048
     Dates: start: 20130618, end: 20130917
  2. KINEDAK [Suspect]
     Indication: DIABETIC NEUROPATHY
     Dosage: 50 MG, TID
     Route: 048
     Dates: start: 20130604, end: 20130917
  3. AMARYL [Suspect]
     Indication: TYPE 2 DIABETES MELLITUS
     Dosage: 1 MG, QD
     Dates: start: 20130604, end: 20130917
  4. METGLUCO [Suspect]
     Indication: TYPE 2 DIABETES MELLITUS
     Dosage: 250 MG, TID
     Dates: start: 20130604, end: 20130617
  5. METGLUCO [Suspect]
     Dosage: 500 MG, BID
     Dates: start: 20130618, end: 20130917
  6. ATORVASTATIN [Suspect]
     Indication: HYPERLIPIDAEMIA
     Dosage: 10 MG, QD
     Route: 048
     Dates: start: 20130618, end: 20130917
  7. METHYCOBAL [Concomitant]
     Dosage: 500 MG, TID
     Dates: start: 20130604, end: 20130917
  8. CALFINA [Concomitant]
     Indication: TYPE 2 DIABETES MELLITUS
     Dosage: UNK
     Dates: start: 20130618, end: 20130917
  9. EVISTA [Concomitant]
     Indication: OSTEOPOROSIS
     Dosage: 60 MG, QD
     Route: 048
     Dates: end: 20130917

REACTIONS (1)
  - Drug-induced liver injury [Recovered/Resolved]
